FAERS Safety Report 8918303 (Version 1)
Quarter: 2012Q4

REPORT INFORMATION
  Report Type: 
  Country: US (occurrence: US)
  Receive Date: 20121120
  Receipt Date: 20121120
  Transmission Date: 20130627
  Serious: No
  Sender: FDA-Public Use
  Company Number: US-ASTRAZENECA-2012SE25742

PATIENT
  Age: 41 Year
  Sex: Female
  Weight: 99.8 kg

DRUGS (5)
  1. NEXIUM [Suspect]
     Indication: GASTROSTOMY
     Route: 048
  2. ATORVASTATIN [Concomitant]
     Indication: BLOOD CHOLESTEROL ABNORMAL
  3. LABETALOL [Concomitant]
     Indication: BLOOD PRESSURE ABNORMAL
  4. ESCITALOPRAM [Concomitant]
     Indication: ANXIETY
  5. BUSPIRONE [Concomitant]
     Indication: ANXIETY

REACTIONS (3)
  - Abdominal distension [Unknown]
  - Abdominal pain upper [Unknown]
  - Intentional drug misuse [Unknown]
